FAERS Safety Report 4481276-1 (Version None)
Quarter: 2004Q4

REPORT INFORMATION
  Report Type: 
  Country: None (occurrence: None)
  Receive Date: 20041021
  Receipt Date: 20041012
  Transmission Date: 20050328
  Serious: Yes (Death, Life-Threatening)
  Sender: FDA-Public Use
  Company Number: FR-BRISTOL-MYERS SQUIBB COMPANY-12730412

PATIENT
  Age: 57 Year
  Sex: Male

DRUGS (2)
  1. TAXOL [Suspect]
     Indication: LUNG NEOPLASM MALIGNANT
     Dosage: C2: 27-FEB-2004
     Route: 042
     Dates: start: 20040206, end: 20040206
  2. CARBOPLATIN [Suspect]
     Indication: LUNG NEOPLASM MALIGNANT
     Dosage: C2: 27-FEB-2004
     Route: 042
     Dates: start: 20040206, end: 20040206

REACTIONS (4)
  - GAIT DISTURBANCE [None]
  - LUNG NEOPLASM MALIGNANT [None]
  - NEUROPATHY PERIPHERAL [None]
  - PARAESTHESIA [None]
